FAERS Safety Report 22622341 (Version 1)
Quarter: 2023Q2

REPORT INFORMATION
  Report Type: Spontaneous
  Country: UY (occurrence: UY)
  Receive Date: 20230620
  Receipt Date: 20230620
  Transmission Date: 20230722
  Serious: Yes (Other)
  Sender: FDA-Public Use
  Company Number: UY-009507513-2306URY003685

PATIENT
  Age: 12 Year
  Sex: Male

DRUGS (3)
  1. RALTEGRAVIR POTASSIUM [Suspect]
     Active Substance: RALTEGRAVIR POTASSIUM
     Indication: HIV infection
     Dosage: UNK
     Route: 048
  2. ELVITEGRAVIR [Suspect]
     Active Substance: ELVITEGRAVIR
  3. BICTEGRAVIR [Suspect]
     Active Substance: BICTEGRAVIR

REACTIONS (2)
  - Pathogen resistance [Unknown]
  - Virologic failure [Unknown]
